FAERS Safety Report 5517884-6 (Version None)
Quarter: 2007Q4

REPORT INFORMATION
  Report Type: 
  Country: None (occurrence: None)
  Receive Date: 20071113
  Receipt Date: 20071030
  Transmission Date: 20080405
  Serious: Yes (Death, Hospitalization, Disabling)
  Sender: FDA-Public Use
  Company Number: 2006US001020

PATIENT
  Age: 67 Year
  Sex: Male

DRUGS (20)
  1. PROGRAF [Suspect]
     Indication: RENAL TRANSPLANT
     Dosage: 9 MG, UID/QD, ORAL
     Route: 048
     Dates: start: 20060208
  2. MYCOPHENOLATE MOFETIL [Suspect]
     Indication: RENAL TRANSPLANT
     Dosage: 500 MG, TID, ORAL
     Route: 048
     Dates: start: 20051213
  3. PREDNISONE TAB [Suspect]
     Indication: RENAL TRANSPLANT
     Dosage: 2.5 MG, UID/QD, ORAL
     Route: 048
     Dates: start: 20051230
  4. INSULIN (INSULIN HUMAN) [Concomitant]
  5. CALCIUM CARBONATE [Concomitant]
  6. ALLOPURINOL [Concomitant]
  7. ZOCOR [Concomitant]
  8. HYDROCHLOROTHIAZIDE [Concomitant]
  9. ROCALTROL [Concomitant]
  10. HEPARIN [Concomitant]
  11. FELODIPIN (FELODIPINE) [Concomitant]
  12. LOPRESSOR [Concomitant]
  13. METOPROLOL TARTRATE [Concomitant]
  14. LANTUS [Concomitant]
  15. CLONIDINE [Concomitant]
  16. ZOSYN [Concomitant]
  17. HYDRALAZINE (HYDRALAZINE HYDROCHLORIDE) [Concomitant]
  18. MAGNESIUM OXIDE (MAGNESIUM OXIDE) [Concomitant]
  19. REGLAN [Concomitant]
  20. ASPIRIN [Concomitant]

REACTIONS (1)
  - MULTIPLE MYELOMA [None]
